FAERS Safety Report 15044574 (Version 1)
Quarter: 2018Q2

REPORT INFORMATION
  Report Type: Spontaneous
  Country: AU (occurrence: AU)
  Receive Date: 20180621
  Receipt Date: 20180621
  Transmission Date: 20180711
  Serious: Yes (Other)
  Sender: FDA-Public Use
  Company Number: AU-AMGEN-AUSSP2018083655

PATIENT
  Sex: Female

DRUGS (1)
  1. VECTIBIX [Suspect]
     Active Substance: PANITUMUMAB
     Indication: COLORECTAL CANCER METASTATIC
     Dosage: UNK
     Route: 065
     Dates: start: 2015, end: 2017

REACTIONS (2)
  - Drug effect decreased [Unknown]
  - Colorectal cancer metastatic [Not Recovered/Not Resolved]

NARRATIVE: CASE EVENT DATE: 2017
